FAERS Safety Report 9933457 (Version 2)
Quarter: 2014Q1

REPORT INFORMATION
  Report Type: Report from Study
  Country: US (occurrence: US)
  Receive Date: 20140228
  Receipt Date: 20140228
  Transmission Date: 20141002
  Serious: No
  Sender: FDA-Public Use
  Company Number: US-MYLANLABS-2013S1021096

PATIENT
  Age: 52 Year
  Sex: Female
  Weight: 122.47 kg

DRUGS (2)
  1. AMNESTEEM CAPSULES [Suspect]
     Indication: FURUNCLE
     Route: 048
     Dates: start: 20130214, end: 20130301
  2. AMNESTEEM CAPSULES [Suspect]
     Indication: OFF LABEL USE
     Route: 048
     Dates: start: 20130214, end: 20130301

REACTIONS (4)
  - Headache [Recovered/Resolved]
  - Face oedema [Recovered/Resolved]
  - Nervousness [Recovered/Resolved]
  - Activities of daily living impaired [Recovered/Resolved]
